FAERS Safety Report 26047640 (Version 1)
Quarter: 2025Q4

REPORT INFORMATION
  Report Type: Spontaneous
  Country: US (occurrence: US)
  Receive Date: 20251114
  Receipt Date: 20251114
  Transmission Date: 20260117
  Serious: Yes (Life-Threatening, Hospitalization)
  Sender: GALPHARM INTERNATIONAL
  Company Number: US-MLMSERVICE-20251029-PI691137-00225-1

PATIENT
  Age: 17 Month
  Sex: Male

DRUGS (1)
  1. MINOXIDIL [Suspect]
     Active Substance: MINOXIDIL
     Indication: Accidental exposure to product by child
     Dosage: INGESTING TOPICAL MINOXIDIL 5%
     Route: 048

REACTIONS (8)
  - Tachycardia [Recovering/Resolving]
  - Hypotension [Recovering/Resolving]
  - Vomiting [Recovering/Resolving]
  - Pulmonary oedema [Recovering/Resolving]
  - Pleural effusion [Recovering/Resolving]
  - Aspiration [Recovering/Resolving]
  - Accidental exposure to product by child [Recovering/Resolving]
  - Wrong route [Recovering/Resolving]
